FAERS Safety Report 16851963 (Version 1)
Quarter: 2019Q3

REPORT INFORMATION
  Report Type: Spontaneous
  Country: GR (occurrence: GR)
  Receive Date: 20190925
  Receipt Date: 20190925
  Transmission Date: 20191005
  Serious: Yes (Hospitalization, Other)
  Sender: FDA-Public Use
  Company Number: GR-AMGEN-GRCSP2019154267

PATIENT
  Age: 65 Year
  Sex: Female

DRUGS (1)
  1. FILGRASTIM [Suspect]
     Active Substance: FILGRASTIM
     Indication: NEUTROPENIA
     Dosage: 48 INTERNATIONAL UNIT, QD
     Route: 058

REACTIONS (5)
  - Escherichia infection [Recovered/Resolved]
  - Lower respiratory tract infection bacterial [Recovered/Resolved]
  - Skin bacterial infection [Recovered/Resolved]
  - Aeromonas infection [Recovered/Resolved]
  - Febrile neutropenia [Recovered/Resolved]
